FAERS Safety Report 7488653-5 (Version None)
Quarter: 2011Q2

REPORT INFORMATION
  Report Type: 
  Country: None (occurrence: None)
  Receive Date: 20110518
  Receipt Date: 20110513
  Transmission Date: 20111010
  Serious: Yes (Hospitalization)
  Sender: FDA-Public Use
  Company Number: A0919934A

PATIENT
  Age: 60 Year
  Sex: Male

DRUGS (2)
  1. AVANDAMET [Suspect]
     Route: 048
     Dates: start: 20021127, end: 20050510
  2. AVANDIA [Suspect]
     Indication: DIABETES MELLITUS
     Dosage: 8MG PER DAY
     Route: 048
     Dates: start: 20050511, end: 20070601

REACTIONS (8)
  - CEREBROVASCULAR ACCIDENT [None]
  - CARDIOMYOPATHY [None]
  - CATHETERISATION CARDIAC [None]
  - CORONARY ARTERY BYPASS [None]
  - CARDIAC ARREST [None]
  - DISEASE PROGRESSION [None]
  - TRANSIENT ISCHAEMIC ATTACK [None]
  - CARDIAC FAILURE CONGESTIVE [None]
